FAERS Safety Report 7368779-7 (Version None)
Quarter: 2011Q1

REPORT INFORMATION
  Report Type: 
  Country: None (occurrence: None)
  Receive Date: 20110304
  Receipt Date: 20101029
  Transmission Date: 20110831
  Serious: Yes (Hospitalization, Other)
  Sender: FDA-Public Use
  Company Number: CLOF-10459

PATIENT
  Age: 62 Year
  Sex: Male

DRUGS (10)
  1. METRONIDAZOLE (METRONIDAZOLE SODIUM) [Concomitant]
  2. CYTARABINE [Suspect]
     Indication: ACUTE MYELOID LEUKAEMIA
     Dosage: 2.33 G, INTRAVENOUS
     Route: 042
     Dates: start: 20070212, end: 20070215
  3. CLOFARABINE [Suspect]
     Indication: ACUTE MYELOID LEUKAEMIA
     Dosage: 93 MG, INTRAVENOUS
     Route: 042
     Dates: start: 20070212, end: 20070215
  4. HYDROCORTISOPNE SODIUM SUCCINATE (HYDROCORTISONE SODIUM SUCCINATE) [Concomitant]
  5. VANCOMYCIN [Concomitant]
  6. MORPHINE [Concomitant]
  7. FUROSEMIDE (FUROSEMIDE SODIUM) [Concomitant]
  8. TRAMADOL HCL [Concomitant]
  9. ROBAXIN [Concomitant]
  10. SKELAXIN [Concomitant]

REACTIONS (17)
  - INCREASED BRONCHIAL SECRETION [None]
  - CAPILLARY LEAK SYNDROME [None]
  - TREMOR [None]
  - PNEUMONIA [None]
  - ACTIVITIES OF DAILY LIVING IMPAIRED [None]
  - HEADACHE [None]
  - BACK PAIN [None]
  - INTERVERTEBRAL DISC DEGENERATION [None]
  - DISEASE COMPLICATION [None]
  - SPEECH DISORDER [None]
  - NEUROTOXICITY [None]
  - ACUTE MYELOID LEUKAEMIA [None]
  - MENTAL STATUS CHANGES [None]
  - LIPASE INCREASED [None]
  - HAEMOPTYSIS [None]
  - PANCREATITIS [None]
  - GAIT DISTURBANCE [None]
